FAERS Safety Report 14092029 (Version 4)
Quarter: 2017Q4

REPORT INFORMATION
  Report Type: Spontaneous
  Country: GB (occurrence: GB)
  Receive Date: 20171016
  Receipt Date: 20171205
  Transmission Date: 20180321
  Serious: Yes (Other)
  Sender: FDA-Public Use
  Company Number: PHHY2017GB151563

PATIENT
  Age: 53 Year
  Sex: Female

DRUGS (1)
  1. COSENTYX [Suspect]
     Active Substance: SECUKINUMAB
     Indication: PRODUCT USED FOR UNKNOWN INDICATION
     Dosage: UNK
     Route: 065
     Dates: start: 20170209

REACTIONS (9)
  - Goitre [Unknown]
  - Palpitations [Unknown]
  - Dizziness [Unknown]
  - Tachycardia [Unknown]
  - Hot flush [Unknown]
  - Thyroid mass [Unknown]
  - Tremor [Unknown]
  - Affect lability [Unknown]
  - Hyperthyroidism [Recovering/Resolving]

NARRATIVE: CASE EVENT DATE: 201708
